FAERS Safety Report 9502638 (Version 1)
Quarter: 2013Q3

REPORT INFORMATION
  Report Type: Spontaneous
  Country: GB (occurrence: GB)
  Receive Date: 20130906
  Receipt Date: 20130906
  Transmission Date: 20140515
  Serious: Yes (Life-Threatening, Other)
  Sender: FDA-Public Use
  Company Number: GB-GENZYME-CAMP-1003118

PATIENT
  Sex: Female

DRUGS (3)
  1. CAMPATH [Suspect]
     Indication: IMMUNOSUPPRESSANT DRUG THERAPY
     Dosage: 30 MG, UNK
     Route: 040
     Dates: start: 20130827
  2. HYDROCORTISONE [Concomitant]
     Indication: IMMUNOSUPPRESSANT DRUG THERAPY
     Dosage: UNK
     Route: 065
     Dates: start: 20130827
  3. CHLORPHENIRAMINE [Concomitant]
     Indication: IMMUNOSUPPRESSANT DRUG THERAPY
     Dosage: UNK
     Route: 065
     Dates: start: 20130827

REACTIONS (2)
  - Circulatory collapse [Unknown]
  - Wheezing [Unknown]
